FAERS Safety Report 9698987 (Version 2)
Quarter: 2013Q4

REPORT INFORMATION
  Report Type: Spontaneous
  Country: CH (occurrence: None)
  Receive Date: 20131118
  Receipt Date: 20131202
  Transmission Date: 20140711
  Serious: Yes (Other)
  Sender: FDA-Public Use
  Company Number: 20130649

PATIENT
  Age: 28 Year
  Sex: Female

DRUGS (1)
  1. FERINJECT [Suspect]
     Indication: IRON DEFICIENCY ANAEMIA
     Dosage: CYCLICAL
     Dates: start: 20131022, end: 20131022

REACTIONS (5)
  - Rash [None]
  - Malaise [None]
  - Dizziness [None]
  - Feeling hot [None]
  - Feeling hot [None]
